FAERS Safety Report 12304471 (Version 1)
Quarter: 2016Q2

REPORT INFORMATION
  Report Type: Spontaneous
  Country: US (occurrence: None)
  Receive Date: 20160425
  Receipt Date: 20160425
  Transmission Date: 20160815
  Serious: Yes (Disabling)
  Sender: FDA-Public Use
  Company Number: None

PATIENT
  Age: 81 Year
  Sex: Female
  Weight: 69.4 kg

DRUGS (12)
  1. LOSARTAN. [Concomitant]
     Active Substance: LOSARTAN
  2. CARDIA [Concomitant]
     Active Substance: AJMALINE
  3. RECLAST [Suspect]
     Active Substance: ZOLEDRONIC ACID
     Indication: OSTEOPOROSIS
     Dosage: ONCE A YEAR  IV
     Route: 042
     Dates: start: 20160218
  4. PRAVACHOL [Concomitant]
     Active Substance: PRAVASTATIN SODIUM
  5. VITAMIN D [Concomitant]
     Active Substance: CHOLECALCIFEROL
  6. ONE-A-DAY NOS [Concomitant]
     Active Substance: MINERALS\VITAMINS
  7. METHOTREXATE [Concomitant]
     Active Substance: METHOTREXATE
  8. ELIQUIS [Concomitant]
     Active Substance: APIXABAN
  9. FUROSEMIDE. [Concomitant]
     Active Substance: FUROSEMIDE
  10. FOLIC ACID. [Concomitant]
     Active Substance: FOLIC ACID
  11. ORENCIA [Concomitant]
     Active Substance: ABATACEPT
  12. CALCIUM [Concomitant]
     Active Substance: CALCIUM

REACTIONS (6)
  - Back pain [None]
  - Insomnia [None]
  - Arthralgia [None]
  - Pain in extremity [None]
  - Palpitations [None]
  - Cystitis [None]
